FAERS Safety Report 8297538 (Version 2)
Quarter: 2012Q4

REPORT INFORMATION
  Report Type: 
  Country: DE (occurrence: FR)
  Receive Date: 20111219
  Receipt Date: 20121001
  Transmission Date: 20130627
  Serious: Yes (Hospitalization)
  Sender: FDA-Public Use
  Company Number: FR-BRISTOL-MYERS SQUIBB COMPANY-16295966

PATIENT
  Age: 71 Year
  Sex: Female

DRUGS (15)
  1. ERBITUX SOLN FOR INF [Suspect]
     Indication: LIP AND/OR ORAL CAVITY CANCER
     Dosage: 5 administrations,No of inj: 6
     Route: 042
     Dates: start: 20110715, end: 20110812
  2. PLAVIX TABS [Concomitant]
  3. KARDEGIC [Concomitant]
     Dosage: Powder for oral solution
     Route: 048
  4. CRESTOR [Concomitant]
     Dosage: 5mg tabs
  5. CORGARD [Concomitant]
     Dosage: 80mg tab
  6. DEDROGYL [Concomitant]
     Dosage: 1 DF :0.15mg/ml,oral drops
     Route: 048
  7. CALCIDIA [Concomitant]
     Dosage: Granules for oral suspension
     Route: 048
  8. AIROMIR [Concomitant]
     Dosage: Airomir autohaler Nasal spray,suspension
     Route: 045
  9. OGASTORO [Concomitant]
     Dosage: 30mg tabs
  10. LERCAN [Concomitant]
     Dosage: 10mg tabs
  11. ZYLORIC [Concomitant]
     Dosage: 100mg tabs
  12. RENVELA [Concomitant]
     Dosage: powder for oral suspension
     Route: 048
  13. LASILIX [Concomitant]
     Dosage: Lasilix special 500mg tabs
  14. XANAX [Concomitant]
     Dosage: 0.5mg tabs
  15. DAFALGAN CAPS 500 MG [Concomitant]

REACTIONS (2)
  - Leukocytoclastic vasculitis [Recovered/Resolved]
  - Vascular purpura [Recovered/Resolved]
